FAERS Safety Report 13512063 (Version 3)
Quarter: 2019Q4

REPORT INFORMATION
  Report Type: Spontaneous
  Country: US (occurrence: US)
  Receive Date: 20170504
  Receipt Date: 20191209
  Transmission Date: 20200122
  Serious: Yes (Other)
  Sender: FDA-Public Use
  Company Number: US-UCBSA-2017016791

PATIENT
  Age: 56 Year
  Sex: Female

DRUGS (4)
  1. PREDNISONE. [Concomitant]
     Active Substance: PREDNISONE
     Indication: PRODUCT USED FOR UNKNOWN INDICATION
     Dosage: UNK
  2. CIMZIA [Suspect]
     Active Substance: CERTOLIZUMAB PEGOL
     Dosage: 400 MG, EV 4 WEEKS
     Route: 058
  3. CIMZIA [Suspect]
     Active Substance: CERTOLIZUMAB PEGOL
     Indication: RHEUMATOID ARTHRITIS
     Dosage: 400 MG, EV 4 WEEKS
     Route: 058
  4. TRIPLE ANTIBIOTIC [Concomitant]
     Indication: FOLLICULITIS
     Dosage: UNK

REACTIONS (7)
  - Pneumonia [Unknown]
  - Rash [Not Recovered/Not Resolved]
  - Rheumatoid arthritis [Unknown]
  - Arthropod bite [Unknown]
  - Pertussis [Unknown]
  - Swelling face [Recovered/Resolved]
  - Folliculitis [Not Recovered/Not Resolved]
